FAERS Safety Report 8479048-6 (Version None)
Quarter: 2012Q2

REPORT INFORMATION
  Report Type: 
  Country: None (occurrence: None)
  Receive Date: 20120629
  Receipt Date: 20120120
  Transmission Date: 20120825
  Serious: Yes (Hospitalization)
  Sender: FDA-Public Use
  Company Number: FR-ROCHE-1032627

PATIENT
  Age: 23 Year
  Sex: Female

DRUGS (1)
  1. TAMIFLU [Suspect]
     Indication: PROPHYLAXIS
     Route: 048
     Dates: start: 20091230, end: 20100103

REACTIONS (2)
  - ABORTION SPONTANEOUS [None]
  - MATERNAL EXPOSURE DURING PREGNANCY [None]
